FAERS Safety Report 23442160 (Version 1)
Quarter: 2024Q1

REPORT INFORMATION
  Report Type: Spontaneous
  Country: US (occurrence: US)
  Receive Date: 20240125
  Receipt Date: 20240125
  Transmission Date: 20240410
  Serious: Yes (Other)
  Sender: FDA-Public Use
  Company Number: US-MLMSERVICE-20240109-4763761-1

PATIENT
  Age: 21 Year
  Sex: Male

DRUGS (3)
  1. METHOTREXATE [Suspect]
     Active Substance: METHOTREXATE
     Indication: B-cell type acute leukaemia
     Dosage: HIGH-DOSE
  2. VINCRISTINE [Suspect]
     Active Substance: VINCRISTINE
     Indication: B-cell type acute leukaemia
  3. DASATINIB [Suspect]
     Active Substance: DASATINIB
     Indication: B-cell type acute leukaemia

REACTIONS (2)
  - Myelosuppression [Unknown]
  - Pneumonia fungal [Unknown]
